FAERS Safety Report 11004219 (Version 1)
Quarter: 2015Q2

REPORT INFORMATION
  Report Type: Spontaneous
  Country: JP (occurrence: JP)
  Receive Date: 20150409
  Receipt Date: 20150409
  Transmission Date: 20150821
  Serious: Yes (Death, Other)
  Sender: FDA-Public Use
  Company Number: JP-TEVA-552904ISR

PATIENT
  Age: 82 Year
  Sex: Male
  Weight: 48 kg

DRUGS (5)
  1. FENTOS [Concomitant]
     Active Substance: FENTANYL
     Route: 062
     Dates: start: 20140903, end: 20140914
  2. SERENACE [Concomitant]
     Active Substance: HALOPERIDOL
     Indication: CANCER PAIN
     Route: 041
     Dates: start: 20140826, end: 20140910
  3. SANDOSTATIN [Concomitant]
     Active Substance: OCTREOTIDE ACETATE
     Indication: CANCER PAIN
     Route: 058
     Dates: start: 20140801, end: 20140910
  4. FENTOS [Concomitant]
     Active Substance: FENTANYL
     Indication: CANCER PAIN
     Dosage: 1 MILLIGRAM DAILY;
     Route: 062
     Dates: start: 20140827, end: 20140902
  5. E-FEN BUCCAL [Suspect]
     Active Substance: FENTANYL CITRATE
     Indication: BREAKTHROUGH PAIN
     Dosage: 0-100 MICROGRAM
     Route: 002
     Dates: start: 20140902, end: 20140912

REACTIONS (3)
  - Depressed level of consciousness [Fatal]
  - Gastric cancer [Fatal]
  - Dyspnoea [Fatal]

NARRATIVE: CASE EVENT DATE: 20140914
